FAERS Safety Report 4439075-2 (Version None)
Quarter: 2004Q3

REPORT INFORMATION
  Report Type: 
  Country: None (occurrence: None)
  Receive Date: 20040901
  Receipt Date: 20040819
  Transmission Date: 20050211
  Serious: Yes (Other)
  Sender: FDA-Public Use
  Company Number: AU-GLAXOSMITHKLINE-B0343862A

PATIENT
  Age: 32 Year
  Sex: Female

DRUGS (1)
  1. TIMENTIN [Suspect]

REACTIONS (13)
  - ABDOMINAL DISTENSION [None]
  - DIABETIC RETINOPATHY [None]
  - DIARRHOEA [None]
  - DIZZINESS [None]
  - FEELING ABNORMAL [None]
  - HEPATIC PAIN [None]
  - HEPATITIS [None]
  - LOSS OF CONSCIOUSNESS [None]
  - MALAISE [None]
  - OPTIC NERVE INJURY [None]
  - REGURGITATION OF FOOD [None]
  - VISUAL DISTURBANCE [None]
  - VOMITING [None]
